FAERS Safety Report 12265428 (Version 2)
Quarter: 2016Q3

REPORT INFORMATION
  Report Type: Spontaneous
  Country: FR (occurrence: FR)
  Receive Date: 20160413
  Receipt Date: 20160714
  Transmission Date: 20161109
  Serious: Yes (Hospitalization, Other)
  Sender: FDA-Public Use
  Company Number: FR-BRISTOL-MYERS SQUIBB COMPANY-BMS-2016-027226

PATIENT
  Age: 80 Year
  Sex: Female
  Weight: 64 kg

DRUGS (4)
  1. COUMADINE [Suspect]
     Active Substance: WARFARIN SODIUM
     Indication: PRODUCT USED FOR UNKNOWN INDICATION
     Dosage: 1 DF, UNK
     Route: 065
  2. AMIODARONE [Suspect]
     Active Substance: AMIODARONE
     Indication: PRODUCT USED FOR UNKNOWN INDICATION
     Dosage: 1 TAB, QD
     Route: 065
  3. LEVOTHYROX [Suspect]
     Active Substance: LEVOTHYROXINE
     Indication: PRODUCT USED FOR UNKNOWN INDICATION
     Dosage: 1 TAB, QD
     Route: 065
  4. SCOPOLAMINE                        /00008701/ [Suspect]
     Active Substance: SCOPOLAMINE
     Indication: MOTION SICKNESS
     Dosage: UNK
     Route: 065
     Dates: start: 20160307, end: 20160324

REACTIONS (5)
  - Pulmonary haematoma [Unknown]
  - Transfusion [Unknown]
  - Haemothorax [Recovered/Resolved]
  - Fatigue [Recovered/Resolved]
  - Haematoma evacuation [Unknown]

NARRATIVE: CASE EVENT DATE: 20160322
